FAERS Safety Report 5916133-4 (Version None)
Quarter: 2008Q4

REPORT INFORMATION
  Report Type: 
  Country: None (occurrence: None)
  Receive Date: 20081009
  Receipt Date: 20081009
  Transmission Date: 20090506
  Serious: Yes (Hospitalization)
  Sender: FDA-Public Use
  Company Number: None

PATIENT
  Age: 85 Year
  Sex: Male

DRUGS (1)
  1. LINEZOLID [Suspect]
     Indication: ARTHRITIS INFECTIVE
     Dates: start: 20080626, end: 20081001

REACTIONS (4)
  - BLOOD LACTIC ACID INCREASED [None]
  - CONFUSIONAL STATE [None]
  - SEDATION [None]
  - THROMBOCYTOPENIA [None]
